FAERS Safety Report 21226691 (Version 3)
Quarter: 2022Q4

REPORT INFORMATION
  Report Type: Spontaneous
  Country: ES (occurrence: ES)
  Receive Date: 20220818
  Receipt Date: 20221220
  Transmission Date: 20230112
  Serious: Yes (Life-Threatening, Other)
  Sender: FDA-Public Use
  Company Number: ES-TEVA-2022-ES-2054408

PATIENT
  Age: 86 Year
  Sex: Female

DRUGS (14)
  1. AMLODIPINE [Suspect]
     Active Substance: AMLODIPINE BESYLATE
     Indication: Cardiovascular disorder
     Dosage: 5 MILLIGRAM, ONCE A DAY
     Route: 048
     Dates: start: 201901
  2. FUROSEMIDE [Suspect]
     Active Substance: FUROSEMIDE
     Indication: Hypertension
     Dosage: 40 MILLIGRAM, ONCE A DAY (3/24 H, PRESCRIBED REGIMEN (1-0.5-0), ADMINISTERED REGIMEN 2.5-0.5-0 FOR O
     Route: 048
     Dates: start: 202110
  3. ACETAMINOPHEN\TRAMADOL [Suspect]
     Active Substance: ACETAMINOPHEN\TRAMADOL
     Indication: Abdominal pain
     Dosage: ONCE A DAY
     Route: 065
     Dates: start: 202106
  4. METAMIZOLE [Suspect]
     Active Substance: METAMIZOLE
     Indication: Abdominal pain
     Dosage: 575 MILLIGRAM, 3 TIMES A DAY (1725 MILLIGRAM DAILY;)
     Route: 048
     Dates: start: 202201
  5. ATORVASTATIN [Concomitant]
     Active Substance: ATORVASTATIN
     Indication: Hyperlipidaemia
     Dosage: 40 MILLIGRAM, ONCE A DAY
     Route: 065
     Dates: start: 201205
  6. ASPIRIN [Concomitant]
     Active Substance: ASPIRIN
     Indication: Anticoagulant therapy
     Dosage: 100 MILLIGRAM, ONCE A DAY
     Route: 065
     Dates: start: 202106
  7. BISOPROLOL [Concomitant]
     Active Substance: BISOPROLOL
     Indication: Heart rate
     Dosage: 0.5 MILLIGRAM, ONCE A DAY
     Route: 065
     Dates: start: 201403
  8. CITICOLINE SODIUM [Concomitant]
     Active Substance: CITICOLINE SODIUM
     Indication: Amnesia
     Dosage: 1000 MILLIGRAM, ONCE A DAY
     Route: 065
     Dates: start: 201506
  9. DEANOL PIDOLATE;HEPTAMINOL HYDROCHLORIDE [Concomitant]
     Indication: Amnesia
     Dosage: UNK, ONCE A DAY
     Route: 065
     Dates: start: 201504
  10. DULOXETINE [Concomitant]
     Active Substance: DULOXETINE
     Indication: Depression
     Dosage: 60 MILLIGRAM, ONCE A DAY
     Route: 065
     Dates: start: 201409
  11. NITROGLYCERIN [Concomitant]
     Active Substance: NITROGLYCERIN
     Indication: Cardiovascular disorder
     Dosage: 10 MILLIGRAM, ONCE A DAY
     Route: 065
     Dates: start: 201905
  12. OMEPRAZOLE [Concomitant]
     Active Substance: OMEPRAZOLE
     Indication: Dyspepsia
     Dosage: 20 MILLIGRAM, ONCE A DAY
     Route: 065
     Dates: start: 201312
  13. TRAZODONE [Concomitant]
     Active Substance: TRAZODONE HYDROCHLORIDE
     Indication: Insomnia
     Dosage: 100 MILLIGRAM, ONCE A DAY
     Route: 065
     Dates: start: 202006
  14. RIFAXIMIN [Concomitant]
     Active Substance: RIFAXIMIN
     Indication: Diverticulitis
     Dosage: 200 MILLIGRAM, 3 DAY
     Route: 065
     Dates: start: 201204

REACTIONS (8)
  - Hypotension [Recovered/Resolved]
  - Fatigue [Recovered/Resolved]
  - Dizziness [Recovered/Resolved]
  - Therapy cessation [Unknown]
  - Malaise [Unknown]
  - Discomfort [Recovered/Resolved]
  - Treatment noncompliance [Unknown]
  - Incorrect dose administered [Unknown]

NARRATIVE: CASE EVENT DATE: 20220201
